FAERS Safety Report 20902503 (Version 9)
Quarter: 2022Q4

REPORT INFORMATION
  Report Type: Spontaneous
  Country: US (occurrence: US)
  Receive Date: 20220601
  Receipt Date: 20221024
  Transmission Date: 20230113
  Serious: No
  Sender: FDA-Public Use
  Company Number: US-PFIZER INC-202200785343

PATIENT
  Age: 40 Year
  Sex: Female

DRUGS (2)
  1. IBRANCE [Suspect]
     Active Substance: PALBOCICLIB
     Dosage: 125 MG, CYCLIC
     Dates: start: 20220531, end: 20220729
  2. IBRANCE [Suspect]
     Active Substance: PALBOCICLIB
     Dosage: 100 MG

REACTIONS (12)
  - Somnolence [Recovering/Resolving]
  - Fatigue [Not Recovered/Not Resolved]
  - Nausea [Not Recovered/Not Resolved]
  - Rash pruritic [Unknown]
  - Weight increased [Not Recovered/Not Resolved]
  - Liver function test abnormal [Unknown]
  - Hypoaesthesia [Recovering/Resolving]
  - Paraesthesia [Recovering/Resolving]
  - Swelling [Not Recovered/Not Resolved]
  - Peripheral swelling [Recovering/Resolving]
  - Hepatic enzyme increased [Unknown]
  - Alopecia [Unknown]

NARRATIVE: CASE EVENT DATE: 20220501
